FAERS Safety Report 4276156-0 (Version None)
Quarter: 2004Q1

REPORT INFORMATION
  Report Type: 
  Country: None (occurrence: None)
  Receive Date: 20040121
  Receipt Date: 20031117
  Transmission Date: 20041129
  Serious: No
  Sender: FDA-Public Use
  Company Number: US-GLAXOSMITHKLINE-A0439985A

PATIENT
  Age: 81 Year
  Sex: Male

DRUGS (2)
  1. VALTREX [Suspect]
     Dosage: 1G THREE TIMES PER DAY
     Route: 048
     Dates: start: 20031112
  2. VALIUM [Concomitant]

REACTIONS (2)
  - DIZZINESS [None]
  - PHARYNGOLARYNGEAL PAIN [None]
